FAERS Safety Report 4731867-5 (Version None)
Quarter: 2005Q3

REPORT INFORMATION
  Report Type: 
  Country: None (occurrence: None)
  Receive Date: 20050802
  Receipt Date: 20050802
  Transmission Date: 20060218
  Serious: Yes (Hospitalization)
  Sender: FDA-Public Use
  Company Number: None

PATIENT
  Age: 76 Year
  Sex: Male
  Weight: 70 kg

DRUGS (12)
  1. WARFARIN 5 MG TAB [Suspect]
     Indication: ATRIAL FIBRILLATION
     Dosage: 10 MG QD ORAL
     Route: 048
  2. ENOXAPARIN SODIUM [Suspect]
     Indication: ATRIAL FIBRILLATION
     Dosage: 90 MG QD SUBCUTANEOUS
     Route: 058
     Dates: start: 20041017, end: 20041025
  3. TYLENOL (CAPLET) [Concomitant]
  4. ALLOPURINOL [Concomitant]
  5. ASPIRIN [Concomitant]
  6. CALCIUM GLUCONATE [Concomitant]
  7. BENADRYL [Concomitant]
  8. PROZAC [Concomitant]
  9. INSULIN [Concomitant]
  10. OMEPRAZOLE [Concomitant]
  11. RISPERIDONE [Concomitant]
  12. MORPHINE [Concomitant]

REACTIONS (3)
  - CATHETER RELATED INFECTION [None]
  - HAEMATOCRIT DECREASED [None]
  - WOUND HAEMORRHAGE [None]
